FAERS Safety Report 7646303-9 (Version None)
Quarter: 2011Q3

REPORT INFORMATION
  Report Type: 
  Country: None (occurrence: None)
  Receive Date: 20110801
  Receipt Date: 20090127
  Transmission Date: 20111222
  Serious: No
  Sender: FDA-Public Use
  Company Number: 2009BI002948

PATIENT
  Sex: Female

DRUGS (1)
  1. TYSABRI [Suspect]
     Indication: MULTIPLE SCLEROSIS
     Route: 042
     Dates: start: 20070102

REACTIONS (9)
  - MENTAL IMPAIRMENT [None]
  - FALL [None]
  - BALANCE DISORDER [None]
  - MULTIPLE SCLEROSIS [None]
  - PAIN IN EXTREMITY [None]
  - RIB FRACTURE [None]
  - MEMORY IMPAIRMENT [None]
  - POST-TRAUMATIC NECK SYNDROME [None]
  - GAIT DISTURBANCE [None]
